FAERS Safety Report 21580818 (Version 1)
Quarter: 2022Q4

REPORT INFORMATION
  Report Type: 
  Country: US (occurrence: US)
  Receive Date: 20221111
  Receipt Date: 20221111
  Transmission Date: 20230113
  Serious: No
  Sender: FDA-Public Use
  Company Number: US-BIOCON-BCN-2022-000732

PATIENT

DRUGS (1)
  1. ROSUVASTATIN CALCIUM [Suspect]
     Active Substance: ROSUVASTATIN CALCIUM
     Indication: Product used for unknown indication

REACTIONS (6)
  - Product substitution issue [Unknown]
  - Palpitations [Unknown]
  - Abdominal discomfort [Unknown]
  - Tinnitus [Unknown]
  - Nausea [Unknown]
  - Dizziness [Unknown]
